FAERS Safety Report 23146093 (Version 2)
Quarter: 2023Q4

REPORT INFORMATION
  Report Type: Report from Study
  Country: MX (occurrence: MX)
  Receive Date: 20231104
  Receipt Date: 20231117
  Transmission Date: 20240110
  Serious: Yes (Other)
  Sender: FDA-Public Use
  Company Number: MX-002147023-NVSC2023MX235193

PATIENT
  Age: 58 Year
  Sex: Female
  Weight: 55 kg

DRUGS (1)
  1. FEMARA [Suspect]
     Active Substance: LETROZOLE
     Indication: Breast cancer
     Dosage: 1 DOSAGE FORM (2.5 MG), QD (AT NIGHT)
     Route: 048
     Dates: start: 20230410, end: 20230821

REACTIONS (4)
  - Skin cancer [Recovering/Resolving]
  - Neoplasm malignant [Recovering/Resolving]
  - Second primary malignancy [Recovering/Resolving]
  - Breast cancer recurrent [Recovering/Resolving]

NARRATIVE: CASE EVENT DATE: 20230701
